FAERS Safety Report 17073425 (Version 3)
Quarter: 2021Q2

REPORT INFORMATION
  Report Type: Spontaneous
  Country: IT (occurrence: IT)
  Receive Date: 20191126
  Receipt Date: 20210623
  Transmission Date: 20210716
  Serious: Yes (Hospitalization)
  Sender: FDA-Public Use
  Company Number: IT-SA-2019SA319828

PATIENT
  Age: 51 Year
  Sex: Female
  Weight: 55 kg

DRUGS (6)
  1. PERTUZUMAB. [Suspect]
     Active Substance: PERTUZUMAB
     Indication: BREAST CANCER
     Dosage: 840 MILLIGRAM, 3XW (MOST RECENT DOSE PRIOR TO EVENT:13/FEB/2017)
     Route: 042
     Dates: start: 20170119, end: 20170119
  2. DOCETAXEL. [Suspect]
     Active Substance: DOCETAXEL
     Dosage: 116 MG, Q3W
     Route: 042
     Dates: start: 20170418, end: 20170418
  3. DOCETAXEL. [Suspect]
     Active Substance: DOCETAXEL
     Indication: BREAST CANCER
     Dosage: 116 MILLIGRAM, 3XW (MOST RECENT DOSE RECEIVED ON 27/MAR/2017,18/APR/2017)
     Route: 042
     Dates: start: 20170119, end: 20170119
  4. TRASTUZUMAB. [Suspect]
     Active Substance: TRASTUZUMAB
     Indication: BREAST CANCER
     Dosage: 8 MILLIGRAM/KILOGRAM, 3XW (MOST RECENT DOSE PRIOR TO THE EVENT WAS 13/FEB/2017
     Route: 042
     Dates: start: 20170119, end: 20170119
  5. PERTUZUMAB. [Suspect]
     Active Substance: PERTUZUMAB
     Dosage: 2520 MG, Q3W
     Route: 042
     Dates: start: 20170213, end: 20170213
  6. TRASTUZUMAB. [Suspect]
     Active Substance: TRASTUZUMAB
     Dosage: 8 MG/KG, Q3W
     Route: 042
     Dates: start: 20170213, end: 20170213

REACTIONS (4)
  - Breast pain [Recovered/Resolved]
  - Paraesthesia [Recovered/Resolved]
  - Presyncope [Recovered/Resolved]
  - Catheter site pain [Recovered/Resolved]

NARRATIVE: CASE EVENT DATE: 20170418
